FAERS Safety Report 17376104 (Version 1)
Quarter: 2020Q1

REPORT INFORMATION
  Report Type: Spontaneous
  Country: US (occurrence: US)
  Receive Date: 20200205
  Receipt Date: 20200205
  Transmission Date: 20200409
  Serious: Yes (Life-Threatening)
  Sender: FDA-Public Use
  Company Number: None

PATIENT
  Age: 46 Year
  Sex: Female
  Weight: 59.85 kg

DRUGS (5)
  1. MAGNESIUM SUPPLEMENT [Concomitant]
  2. CRANBERRY SUPPLEMENT [Concomitant]
  3. LEVOFLOXACIN GENERIC FOR LEVAQUIN [Suspect]
     Active Substance: LEVOFLOXACIN
     Indication: KIDNEY INFECTION
     Dosage: ?          QUANTITY:1 TABLET(S);?
     Route: 048
     Dates: start: 20200204, end: 20200205
  4. ESTROVEN NATURAL SUPPLEMENT [Concomitant]
  5. CALTRATE SUPPLEMENT [Concomitant]

REACTIONS (2)
  - Hypersensitivity [None]
  - Night sweats [None]

NARRATIVE: CASE EVENT DATE: 20200204
